FAERS Safety Report 18941481 (Version 1)
Quarter: 2021Q1

REPORT INFORMATION
  Report Type: Spontaneous
  Country: DE (occurrence: DE)
  Receive Date: 20210225
  Receipt Date: 20210225
  Transmission Date: 20210420
  Serious: Yes (Hospitalization)
  Sender: FDA-Public Use
  Company Number: DE-TEVA-2021-DE-1882758

PATIENT
  Age: 36 Year
  Sex: Male
  Weight: 69 kg

DRUGS (2)
  1. CLOZAPIN HEXAL 100 MG TABLETTEN [Suspect]
     Active Substance: CLOZAPINE
     Indication: SCHIZOPHRENIA
     Dosage: 300 MILLIGRAM DAILY; 3 TABLETS AT NIGHT AT 9 P.M.
     Route: 048
     Dates: start: 20201021
  2. CLOZAPIN?RATIOPHARM 25 MG TABLETTEN [Suspect]
     Active Substance: CLOZAPINE
     Indication: SCHIZOPHRENIA
     Dosage: 50 MILLIGRAM DAILY; AT 8 A.M. AND 6 P.M.
     Dates: start: 20201015

REACTIONS (1)
  - Antipsychotic drug level decreased [Unknown]

NARRATIVE: CASE EVENT DATE: 20201201
